FAERS Safety Report 5909099-4 (Version None)
Quarter: 2008Q4

REPORT INFORMATION
  Report Type: 
  Country: None (occurrence: None)
  Receive Date: 20081006
  Receipt Date: 20080729
  Transmission Date: 20090506
  Serious: No
  Sender: FDA-Public Use
  Company Number: US-BAYER-200829933NA

PATIENT
  Sex: Female

DRUGS (2)
  1. MENOSTAR [Suspect]
     Indication: DRUG USE FOR UNKNOWN INDICATION
     Route: 062
  2. GENERIC PATCH NOS [Concomitant]

REACTIONS (1)
  - BLOOD OESTROGEN DECREASED [None]
